FAERS Safety Report 11798336 (Version 1)
Quarter: 2015Q4

REPORT INFORMATION
  Report Type: Spontaneous
  Country: US (occurrence: US)
  Receive Date: 20151203
  Receipt Date: 20151203
  Transmission Date: 20160305
  Serious: No
  Sender: FDA-Public Use
  Company Number: US-REGENERON PHARMACEUTICALS, INC.-2015-11145

PATIENT

DRUGS (18)
  1. RANITIDINE [Concomitant]
     Active Substance: RANITIDINE\RANITIDINE HYDROCHLORIDE
     Dosage: 150 MG MILLIGRAM(S), UNK
  2. CLOPIDOGREL [Concomitant]
     Active Substance: CLOPIDOGREL BISULFATE
     Dosage: 75 MG MILLIGRAM(S), UNK
  3. EYLEA [Suspect]
     Active Substance: AFLIBERCEPT
     Dosage: 2 MG MILLIGRAM(S), IN LEFT EYE EVERY 8 WEEKS FOR 3 CYCLES
     Route: 031
     Dates: start: 20150212, end: 20150212
  4. LOVASTATIN. [Concomitant]
     Active Substance: LOVASTATIN
     Dosage: 20 MG MILLIGRAM(S), UNK
  5. BUPROPION                          /00700502/ [Concomitant]
     Dosage: 150 MG MILLIGRAM(S), UNK
  6. PRIMIDONE. [Concomitant]
     Active Substance: PRIMIDONE
     Dosage: 50 MG MILLIGRAM(S), UNK
  7. PATADAY [Concomitant]
     Active Substance: OLOPATADINE HYDROCHLORIDE
     Dosage: 0.2 % PERCENT, UNK
  8. SYNTHROID [Concomitant]
     Active Substance: LEVOTHYROXINE SODIUM
     Dosage: 0.025 MG MILLIGRAM(S), UNK
  9. LOVAZA [Concomitant]
     Active Substance: OMEGA-3-ACID ETHYL ESTERS
     Dosage: 1 G GRAM (S), UNK
  10. NIFEDIPINE. [Concomitant]
     Active Substance: NIFEDIPINE
     Dosage: 130 MG MILLIGRAM(S), UNK
  11. LUMIGAN EYE DROPS 0.03% [Concomitant]
     Dosage: 0.03 % PERCENT, UNK
  12. VENLAFAXINE [Concomitant]
     Active Substance: VENLAFAXINE HYDROCHLORIDE
     Dosage: 75 MG MILLIGRAM(S), UNK
  13. METOPROLOL TARTRATE. [Concomitant]
     Active Substance: METOPROLOL TARTRATE
     Dosage: 25 MG MILLIGRAM(S), UNK
  14. EYLEA [Suspect]
     Active Substance: AFLIBERCEPT
     Indication: RETINAL VEIN OCCLUSION
     Dosage: 2 MG MILLIGRAM(S), IN THE LEFT EYE EVERY 8 WEEKS FOR 3 CYCLES
     Route: 031
     Dates: start: 20131219
  15. GLIMEPIRIDE. [Concomitant]
     Active Substance: GLIMEPIRIDE
     Dosage: 4 MG MILLIGRAM(S), UNK
  16. ONGLYZA [Concomitant]
     Active Substance: SAXAGLIPTIN HYDROCHLORIDE
     Dosage: 5 MG MILLIGRAM(S), UNK
  17. VESICARE [Concomitant]
     Active Substance: SOLIFENACIN SUCCINATE
     Dosage: 10 MG MILLIGRAM(S), UNK
  18. ZETIA [Concomitant]
     Active Substance: EZETIMIBE
     Dosage: 10 MG MILLIGRAM(S), UNK

REACTIONS (2)
  - Abdominal pain upper [Recovered/Resolved]
  - Gastroenteritis [Recovered/Resolved]

NARRATIVE: CASE EVENT DATE: 20150423
